FAERS Safety Report 9014440 (Version 1)
Quarter: 2013Q1

REPORT INFORMATION
  Report Type: Spontaneous
  Country: US (occurrence: US)
  Receive Date: 20130115
  Receipt Date: 20130115
  Transmission Date: 20140127
  Serious: No
  Sender: FDA-Public Use
  Company Number: US-PFIZER INC-2013015223

PATIENT
  Sex: Male

DRUGS (2)
  1. ADVIL [Suspect]
     Indication: PROCEDURAL PAIN
     Dosage: UNK
     Dates: start: 201301, end: 20130110
  2. PERCOCET [Concomitant]
     Indication: PROCEDURAL PAIN
     Dosage: UNK
     Dates: start: 201301

REACTIONS (3)
  - Overdose [Unknown]
  - Feeling abnormal [Unknown]
  - Somnolence [Unknown]
